FAERS Safety Report 14564092 (Version 20)
Quarter: 2019Q3

REPORT INFORMATION
  Report Type: Report from Study
  Country: CA (occurrence: CA)
  Receive Date: 20180222
  Receipt Date: 20190829
  Transmission Date: 20191004
  Serious: Yes (Life-Threatening, Hospitalization, Other)
  Sender: FDA-Public Use
  Company Number: CA-BRISTOL-MYERS SQUIBB COMPANY-BMS-2017-084042

PATIENT
  Age: 41 Year
  Sex: Female

DRUGS (5)
  1. PAXIL [Concomitant]
     Active Substance: PAROXETINE HYDROCHLORIDE
     Indication: DEPRESSION
     Dosage: 20 MG, UNK
     Route: 065
  2. ABATACEPT [Suspect]
     Active Substance: ABATACEPT
     Indication: RHEUMATOID ARTHRITIS
     Dosage: 750 MG, Q4WK
     Route: 042
     Dates: start: 20170819, end: 20190310
  3. WELLBUTRIN [Concomitant]
     Active Substance: BUPROPION HYDROCHLORIDE
     Indication: DEPRESSION
     Dosage: 300 MG, UNK
     Route: 065
  4. WELLBUTRIN [Concomitant]
     Active Substance: BUPROPION HYDROCHLORIDE
     Indication: PRODUCT USED FOR UNKNOWN INDICATION
     Dosage: 150 MG, UNK
     Route: 065
  5. PAXIL [Concomitant]
     Active Substance: PAROXETINE HYDROCHLORIDE
     Indication: PRODUCT USED FOR UNKNOWN INDICATION
     Dosage: 40 MG, UNK
     Route: 065

REACTIONS (38)
  - Fall [Recovering/Resolving]
  - Asthenia [Unknown]
  - Tooth disorder [Recovered/Resolved]
  - Fatigue [Recovered/Resolved]
  - Rhinorrhoea [Unknown]
  - Depression [Recovering/Resolving]
  - Treatment noncompliance [Unknown]
  - Eye disorder [Unknown]
  - Nasal congestion [Not Recovered/Not Resolved]
  - Weight decreased [Not Recovered/Not Resolved]
  - Gait disturbance [Recovered/Resolved]
  - Seasonal allergy [Not Recovered/Not Resolved]
  - Anxiety [Unknown]
  - Malaise [Unknown]
  - Tooth infection [Unknown]
  - Chills [Not Recovered/Not Resolved]
  - Sinusitis [Recovered/Resolved]
  - Pericardial effusion [Unknown]
  - Blindness [Unknown]
  - Dysphonia [Not Recovered/Not Resolved]
  - Pain [Recovering/Resolving]
  - Urinary tract infection [Recovering/Resolving]
  - Bronchitis [Recovering/Resolving]
  - Productive cough [Unknown]
  - Nausea [Not Recovered/Not Resolved]
  - Eye irritation [Unknown]
  - Rheumatoid arthritis [Recovering/Resolving]
  - Dizziness [Unknown]
  - Migraine [Unknown]
  - Chills [Recovering/Resolving]
  - Pericarditis [Unknown]
  - Kidney infection [Not Recovered/Not Resolved]
  - Gingivitis [Recovering/Resolving]
  - Influenza [Not Recovered/Not Resolved]
  - Fibromyalgia [Not Recovered/Not Resolved]
  - Cough [Unknown]
  - Chest pain [Unknown]
  - Nasopharyngitis [Not Recovered/Not Resolved]

NARRATIVE: CASE EVENT DATE: 20170821
